FAERS Safety Report 12631360 (Version 2)
Quarter: 2016Q3

REPORT INFORMATION
  Report Type: Spontaneous
  Country: US (occurrence: US)
  Receive Date: 20160808
  Receipt Date: 20160808
  Transmission Date: 20161109
  Serious: No
  Sender: FDA-Public Use
  Company Number: US-BEH-2015053498

PATIENT
  Sex: Male
  Weight: 97 kg

DRUGS (25)
  1. EPIPEN [Concomitant]
     Active Substance: EPINEPHRINE
  2. TYLENOL [Concomitant]
     Active Substance: ACETAMINOPHEN
  3. ALLOPURINOL. [Concomitant]
     Active Substance: ALLOPURINOL
  4. METOPROLOL. [Concomitant]
     Active Substance: METOPROLOL
  5. WARFARIN [Concomitant]
     Active Substance: WARFARIN
  6. TRIPLE OMEGA COMPLEX [Concomitant]
  7. LASIX [Concomitant]
     Active Substance: FUROSEMIDE
  8. HIZENTRA [Suspect]
     Active Substance: HUMAN IMMUNOGLOBULIN G
     Indication: IMMUNODEFICIENCY COMMON VARIABLE
     Route: 058
  9. DIPHENHYDRAMINE. [Concomitant]
     Active Substance: DIPHENHYDRAMINE
  10. NIACIN. [Concomitant]
     Active Substance: NIACIN
  11. SYNTHROID [Concomitant]
     Active Substance: LEVOTHYROXINE SODIUM
  12. DAILY VITAMIN FOR MEN [Concomitant]
  13. MAGNESIUM [Concomitant]
     Active Substance: MAGNESIUM
  14. GLUCOSAMINE [Concomitant]
     Active Substance: GLUCOSAMINE
  15. SELENIUM [Concomitant]
     Active Substance: SELENIUM
  16. IRON [Concomitant]
     Active Substance: IRON
  17. BACTROBAN [Concomitant]
     Active Substance: MUPIROCIN\MUPIROCIN CALCIUM
  18. OMEPRAZOLE. [Concomitant]
     Active Substance: OMEPRAZOLE
  19. VITAMIN C [Concomitant]
     Active Substance: ASCORBIC ACID
  20. LEVSIN [Concomitant]
     Active Substance: HYOSCYAMINE SULFATE
  21. CALCIUM [Concomitant]
     Active Substance: CALCIUM
  22. VITAMIN E [Concomitant]
     Active Substance: .ALPHA.-TOCOPHEROL
  23. SUPER B COMPLEX [Concomitant]
     Active Substance: CYANOCOBALAMIN\DEXPANTHENOL\NIACINAMIDE\PYRIDOXINE HYDROCHLORIDE\RIBOFLAVIN 5^-PHOSPHATE SODIUM\THIAMINE HYDROCHLORIDE\VITAMIN B COMPLEX
  24. METFORMIN [Concomitant]
     Active Substance: METFORMIN HYDROCHLORIDE
  25. SIMVASTATIN. [Concomitant]
     Active Substance: SIMVASTATIN

REACTIONS (1)
  - Infusion site infection [Unknown]
